FAERS Safety Report 7555745-1 (Version None)
Quarter: 2011Q2

REPORT INFORMATION
  Report Type: 
  Country: None (occurrence: None)
  Receive Date: 20110617
  Receipt Date: 20110610
  Transmission Date: 20111010
  Serious: Yes (Other)
  Sender: FDA-Public Use
  Company Number: SA-GENENTECH-320242

PATIENT
  Age: 7 Month
  Sex: Female
  Weight: 3.5 kg

DRUGS (3)
  1. ALTEPLASE [Suspect]
     Indication: INTRACARDIAC THROMBUS
     Route: 042
  2. HEPARIN [Concomitant]
     Indication: PROPHYLAXIS
  3. ASPIRIN [Concomitant]
     Indication: PRODUCT USED FOR UNKNOWN INDICATION

REACTIONS (1)
  - HAEMORRHAGE [None]
